FAERS Safety Report 4761443-X (Version None)
Quarter: 2005Q3

REPORT INFORMATION
  Report Type: 
  Country: None (occurrence: None)
  Receive Date: 20050830
  Receipt Date: 20050525
  Transmission Date: 20060218
  Serious: Yes (Other)
  Sender: FDA-Public Use
  Company Number: US_0506118204

PATIENT
  Age: 29 Year
  Sex: Male
  Weight: 91 kg

DRUGS (1)
  1. SYMBYAX [Suspect]
     Dates: start: 20040801

REACTIONS (1)
  - HEPATIC ENZYME INCREASED [None]
